FAERS Safety Report 9788364 (Version 1)
Quarter: 2013Q4

REPORT INFORMATION
  Report Type: Spontaneous
  Country: IT (occurrence: IT)
  Receive Date: 20131230
  Receipt Date: 20131230
  Transmission Date: 20140711
  Serious: Yes (Hospitalization)
  Sender: FDA-Public Use
  Company Number: IT-DRREDDYS-USA/ITL/13/0036727

PATIENT
  Age: 40 Year
  Sex: Male
  Weight: 110 kg

DRUGS (6)
  1. RISPERIDONE [Suspect]
     Indication: PRODUCT USED FOR UNKNOWN INDICATION
     Route: 065
  2. PHENOBARBITAL [Suspect]
     Indication: PRODUCT USED FOR UNKNOWN INDICATION
     Route: 065
  3. LORAZEPAM [Suspect]
     Indication: PRODUCT USED FOR UNKNOWN INDICATION
     Route: 065
  4. CLOTIAZEPAM [Suspect]
     Indication: PRODUCT USED FOR UNKNOWN INDICATION
     Route: 065
  5. BISOPROLOL [Suspect]
     Indication: PRODUCT USED FOR UNKNOWN INDICATION
     Route: 065
  6. OLANZAPINE [Concomitant]
     Indication: BORDERLINE PERSONALITY DISORDER
     Route: 065

REACTIONS (4)
  - Suicide attempt [Unknown]
  - Stress cardiomyopathy [Recovered/Resolved]
  - Respiratory acidosis [Recovered/Resolved]
  - Coma [Recovered/Resolved]
